FAERS Safety Report 19685331 (Version 2)
Quarter: 2021Q3

REPORT INFORMATION
  Report Type: Spontaneous
  Country: BR (occurrence: BR)
  Receive Date: 20210811
  Receipt Date: 20210817
  Transmission Date: 20211014
  Serious: Yes (Life-Threatening, Other)
  Sender: FDA-Public Use
  Company Number: BR-AMGEN-BRANI2021120632

PATIENT
  Age: 4 Year
  Sex: Male

DRUGS (4)
  1. BLINCYTO [Suspect]
     Active Substance: BLINATUMOMAB
     Indication: PRODUCT USED FOR UNKNOWN INDICATION
     Dosage: UNK
     Route: 065
     Dates: end: 20210803
  2. METHOTREXATE. [Suspect]
     Active Substance: METHOTREXATE
     Indication: PRODUCT USED FOR UNKNOWN INDICATION
     Route: 065
  3. AMINOPHYLLINE. [Concomitant]
     Active Substance: AMINOPHYLLINE
  4. BLINCYTO [Suspect]
     Active Substance: BLINATUMOMAB
     Dosage: UNK
     Route: 065
     Dates: start: 202108, end: 20210812

REACTIONS (7)
  - Disease progression [Unknown]
  - Apnoea [Unknown]
  - Partial seizures [Recovered/Resolved]
  - Hepatosplenomegaly [Not Recovered/Not Resolved]
  - Hypertension [Unknown]
  - Enterobacter sepsis [Unknown]
  - Neurotoxicity [Unknown]

NARRATIVE: CASE EVENT DATE: 202108
